FAERS Safety Report 8683099 (Version 4)
Quarter: 2013Q2

REPORT INFORMATION
  Report Type: Report from Study
  Country: JP (occurrence: JP)
  Receive Date: 20120725
  Receipt Date: 20130624
  Transmission Date: 20140414
  Serious: Yes (Other)
  Sender: FDA-Public Use
  Company Number: JP-009507513-1207JPN008115

PATIENT
  Age: 66 Year
  Sex: Female
  Weight: 50 kg

DRUGS (7)
  1. PEGINTRON [Suspect]
     Indication: CHRONIC HEPATITIS C
     Dosage: 1.5 MICROGRAM PER KILOGRAM, QW
     Route: 058
     Dates: start: 20120409, end: 20120613
  2. REBETOL [Suspect]
     Indication: CHRONIC HEPATITIS C
     Dosage: 800 MG, QD
     Route: 048
     Dates: start: 20120409, end: 20120426
  3. REBETOL [Suspect]
     Dosage: 400 MG, QD
     Route: 048
     Dates: start: 20120427, end: 20120508
  4. REBETOL [Suspect]
     Dosage: 200 MG, QD
     Route: 048
     Dates: start: 20120509, end: 20120522
  5. TELAVIC [Suspect]
     Indication: CHRONIC HEPATITIS C
     Dosage: 1500 MG, QD, CUMULATIVE DOSE: 9000MG
     Route: 048
     Dates: start: 20120409, end: 20120605
  6. URSO [Concomitant]
     Indication: CHRONIC HEPATITIS C
     Dosage: 400 MG, QD
     Route: 048
     Dates: start: 200804
  7. ZYLORIC [Concomitant]
     Indication: PROPHYLAXIS
     Dosage: FORMULATION: POR
     Route: 048
     Dates: start: 20120414

REACTIONS (2)
  - Anaemia [Recovered/Resolved]
  - Haemoglobin decreased [Recovered/Resolved]
